FAERS Safety Report 22606799 (Version 1)
Quarter: 2023Q2

REPORT INFORMATION
  Report Type: Spontaneous
  Country: MY (occurrence: MY)
  Receive Date: 20230615
  Receipt Date: 20230615
  Transmission Date: 20230722
  Serious: Yes (Other)
  Sender: FDA-Public Use
  Company Number: MY-PFIZER INC-202300220742

PATIENT
  Age: 6 Year
  Sex: Female

DRUGS (1)
  1. SOLU-CORTEF [Suspect]
     Active Substance: HYDROCORTISONE SODIUM SUCCINATE
     Indication: Bronchospasm
     Dosage: 80 MG, DAILY
     Route: 042

REACTIONS (6)
  - Periorbital swelling [Recovered/Resolved]
  - Urticaria [Recovered/Resolved]
  - Dyspnoea [Recovered/Resolved]
  - Wheezing [Recovered/Resolved]
  - Nasal congestion [Recovered/Resolved]
  - Off label use [Unknown]
